FAERS Safety Report 15259653 (Version 1)
Quarter: 2018Q4

REPORT INFORMATION
  Report Type: Report from Study
  Country: HU (occurrence: HU)
  Receive Date: 20180809
  Receipt Date: 20180809
  Transmission Date: 20190204
  Serious: Yes (Other)
  Sender: FDA-Public Use
  Company Number: HU-PFIZER INC-2018312704

PATIENT
  Age: 58 Year
  Sex: Male

DRUGS (8)
  1. NORVASC [Suspect]
     Active Substance: AMLODIPINE BESYLATE
     Indication: HYPERTENSION
     Dosage: 5 MG AT NIGHT
     Dates: start: 20161123
  2. LISONORM [Suspect]
     Active Substance: AMLODIPINE BESYLATE\LISINOPRIL
     Indication: HYPERTENSION
     Dosage: AMLODIPIN 5 MG AND LISINOPRIL 20 MG, 1X/DAY
     Route: 048
     Dates: start: 20161123
  3. EBRANTIL /00631801/ [Suspect]
     Active Substance: URAPIDIL
     Indication: HYPERTENSION
     Dosage: 2X60 MG
     Route: 048
     Dates: start: 20161123
  4. FUROSEMID [Concomitant]
     Active Substance: FUROSEMIDE
     Indication: CARDIAC FAILURE
     Dosage: 3X40 MG PER WEEK
     Dates: start: 20131012
  5. ASA [Concomitant]
     Active Substance: ASPIRIN
     Indication: MYOCARDIAL ISCHAEMIA
     Dosage: 1X100 MG
     Dates: start: 20060921
  6. ANTACLAST [Suspect]
     Active Substance: CILOSTAZOL
     Indication: PERIPHERAL ARTERIAL OCCLUSIVE DISEASE
     Dates: start: 20161123
  7. KALIUM-R [Concomitant]
     Indication: CARDIAC FAILURE
     Dosage: 3 G, WEEKLY
     Dates: start: 20131012
  8. MODUXIN MR [Concomitant]
     Active Substance: TRIMETAZIDINE DIHYDROCHLORIDE
     Indication: MYOCARDIAL ISCHAEMIA
     Dosage: 2X35 MG
     Dates: start: 20160912

REACTIONS (2)
  - Cardiac failure [Recovered/Resolved]
  - Condition aggravated [Recovered/Resolved]

NARRATIVE: CASE EVENT DATE: 20171208
